FAERS Safety Report 5648910-1 (Version None)
Quarter: 2008Q1

REPORT INFORMATION
  Report Type: 
  Country: None (occurrence: None)
  Receive Date: 20080304
  Receipt Date: 20080201
  Transmission Date: 20080703
  Serious: No
  Sender: FDA-Public Use
  Company Number: US-BAYER-200812960NA

PATIENT
  Age: 57 Year
  Sex: Male

DRUGS (3)
  1. ULTRAVIST 370 [Suspect]
     Indication: COMPUTERISED TOMOGRAM ABDOMEN
     Route: 042
     Dates: start: 20080131, end: 20080131
  2. ULTRAVIST 370 [Suspect]
  3. GASTROGRAFIN [Concomitant]
     Route: 048
     Dates: start: 20080131, end: 20080131

REACTIONS (2)
  - PHARYNGOLARYNGEAL PAIN [None]
  - URTICARIA [None]
